FAERS Safety Report 20124769 (Version 1)
Quarter: 2021Q4

REPORT INFORMATION
  Report Type: Spontaneous
  Country: US (occurrence: US)
  Receive Date: 20211129
  Receipt Date: 20211129
  Transmission Date: 20220303
  Serious: Yes (Other)
  Sender: FDA-Public Use
  Company Number: US-MYLANLABS-2021M1087044

PATIENT
  Age: 26 Year
  Sex: Male

DRUGS (9)
  1. DOXORUBICIN [Suspect]
     Active Substance: DOXORUBICIN
     Indication: Extraskeletal myxoid chondrosarcoma
     Dosage: UNK UNK, CYCLE
     Route: 065
  2. GEMCITABINE [Concomitant]
     Active Substance: GEMCITABINE
     Indication: Extraskeletal myxoid chondrosarcoma
     Dosage: UNK UNK, CYCLE, 1 CYCLE
     Route: 065
  3. IFOSFAMIDE [Concomitant]
     Active Substance: IFOSFAMIDE
     Indication: Extraskeletal myxoid chondrosarcoma
     Dosage: UNK UNK, CYCLE
     Route: 065
  4. ALBUTEROL                          /00139501/ [Concomitant]
     Indication: Asthma
     Dosage: UNK
     Route: 065
  5. TIOTROPIUM [Concomitant]
     Active Substance: TIOTROPIUM
     Indication: Asthma
     Dosage: UNK
     Route: 065
  6. BECLOMETHASONE                     /00212601/ [Concomitant]
     Indication: Asthma
     Dosage: UNK
     Route: 065
  7. MONTELUKAST [Concomitant]
     Active Substance: MONTELUKAST SODIUM
     Indication: Asthma
     Dosage: UNK
     Route: 065
  8. DOCUSATE SODIUM [Concomitant]
     Active Substance: DOCUSATE SODIUM
     Indication: Haemorrhoids
     Dosage: UNK
     Route: 065
  9. DIBUCAINE                          /00164101/ [Concomitant]
     Indication: Haemorrhoids
     Dosage: UNK
     Route: 065

REACTIONS (1)
  - Therapy non-responder [Unknown]
